FAERS Safety Report 23317966 (Version 3)
Quarter: 2024Q1

REPORT INFORMATION
  Report Type: Report from Study
  Country: US (occurrence: US)
  Receive Date: 20231219
  Receipt Date: 20240226
  Transmission Date: 20240410
  Serious: Yes (Congenital Anomaly)
  Sender: FDA-Public Use
  Company Number: US-ABBVIE-5546681

PATIENT
  Age: 0 Year
  Sex: Male

DRUGS (4)
  1. RITONAVIR [Suspect]
     Active Substance: RITONAVIR
     Indication: Maternal exposure timing unspecified
     Route: 064
  2. BICTEGRAVIR\EMTRICITABINE\TENOFOVIR ALAFENAMIDE [Suspect]
     Active Substance: BICTEGRAVIR\EMTRICITABINE\TENOFOVIR ALAFENAMIDE
     Indication: Maternal exposure timing unspecified
     Route: 064
  3. DARUNAVIR [Suspect]
     Active Substance: DARUNAVIR
     Indication: Maternal exposure timing unspecified
     Dosage: PREZISTA, DRV)   1
     Route: 064
  4. DOLUTEGRAVIR [Suspect]
     Active Substance: DOLUTEGRAVIR
     Indication: Maternal exposure timing unspecified
     Dosage: (TIVICAY, DTG)  1
     Route: 064

REACTIONS (2)
  - Congenital renal disorder [Recovered/Resolved]
  - Foetal exposure during pregnancy [Unknown]

NARRATIVE: CASE EVENT DATE: 20231106
